FAERS Safety Report 16995190 (Version 1)
Quarter: 2019Q4

REPORT INFORMATION
  Report Type: Spontaneous
  Country: FR (occurrence: FR)
  Receive Date: 20191105
  Receipt Date: 20191105
  Transmission Date: 20200122
  Serious: Yes (Hospitalization)
  Sender: FDA-Public Use
  Company Number: FR-ELI_LILLY_AND_COMPANY-FR201911001679

PATIENT
  Age: 39 Year
  Sex: Male

DRUGS (2)
  1. FLUOXETINE ARROW [Suspect]
     Active Substance: FLUOXETINE HYDROCHLORIDE
     Indication: MAJOR DEPRESSION
     Dosage: UNK, UNKNOWN
     Route: 048
     Dates: start: 20190927, end: 20191009
  2. OLANZAPINE. [Suspect]
     Active Substance: OLANZAPINE
     Indication: MAJOR DEPRESSION
     Dosage: UNK, UNKNOWN
     Route: 048
     Dates: start: 20190926, end: 20191009

REACTIONS (2)
  - Hepatocellular injury [Not Recovered/Not Resolved]
  - Blood creatine phosphokinase increased [Not Recovered/Not Resolved]

NARRATIVE: CASE EVENT DATE: 20191007
